FAERS Safety Report 5922167-6 (Version None)
Quarter: 2008Q4

REPORT INFORMATION
  Report Type: 
  Country: None (occurrence: None)
  Receive Date: 20081017
  Receipt Date: 20081008
  Transmission Date: 20090506
  Serious: Yes (Other)
  Sender: FDA-Public Use
  Company Number: AU-ASTRAZENECA-2008AP07816

PATIENT
  Sex: Female

DRUGS (1)
  1. EMLA [Suspect]
     Route: 061

REACTIONS (3)
  - CARDIAC ARREST [None]
  - OVERDOSE [None]
  - PARAESTHESIA [None]
